FAERS Safety Report 12549245 (Version 2)
Quarter: 2016Q3

REPORT INFORMATION
  Report Type: Spontaneous
  Country: US (occurrence: US)
  Receive Date: 20160712
  Receipt Date: 20160722
  Transmission Date: 20161109
  Serious: Yes (Other)
  Sender: FDA-Public Use
  Company Number: US-FRI-1000085873

PATIENT
  Age: 53 Year
  Sex: Male
  Weight: 75 kg

DRUGS (11)
  1. SAPHRIS [Suspect]
     Active Substance: ASENAPINE MALEATE
     Dosage: 2.5MG TABLET, 1/2 TABLET DAILY
     Route: 060
     Dates: start: 20160702
  2. TYLENOL [Concomitant]
     Active Substance: ACETAMINOPHEN
     Indication: FACIAL PAIN
     Route: 048
  3. VITAMIN B12 [Concomitant]
     Active Substance: CYANOCOBALAMIN
     Indication: VITAMIN B12 DEFICIENCY
     Route: 048
  4. GABAPENTIN. [Concomitant]
     Active Substance: GABAPENTIN
     Indication: NEUROPATHY PERIPHERAL
     Route: 048
  5. HYDROCODONE [Concomitant]
     Active Substance: HYDROCODONE
     Indication: PAIN
     Route: 048
  6. DEPLIN [Concomitant]
     Active Substance: LEVOMEFOLATE CALCIUM
     Indication: DEPRESSION
     Route: 048
  7. SALSALATE. [Concomitant]
     Active Substance: SALSALATE
     Indication: FACIAL PAIN
     Route: 048
  8. SAPHRIS [Suspect]
     Active Substance: ASENAPINE MALEATE
     Indication: DELUSIONAL DISORDER, UNSPECIFIED TYPE
     Dosage: 2.5 MG
     Route: 060
     Dates: start: 20160412, end: 20160524
  9. SAPHRIS [Suspect]
     Active Substance: ASENAPINE MALEATE
     Dosage: 2.5 MG
     Route: 060
     Dates: start: 20160605, end: 20160701
  10. INVEGA [Suspect]
     Active Substance: PALIPERIDONE
     Indication: DELUSIONAL DISORDER, UNSPECIFIED TYPE
     Route: 048
     Dates: start: 20160208, end: 20160411
  11. VITAMIN D3 [Concomitant]
     Active Substance: CHOLECALCIFEROL
     Indication: VITAMIN D DEFICIENCY
     Route: 048

REACTIONS (20)
  - Abdominal pain [Recovered/Resolved]
  - Psychomotor hyperactivity [Recovering/Resolving]
  - Facial pain [Recovered/Resolved]
  - Tremor [Recovered/Resolved]
  - Dizziness [Recovering/Resolving]
  - Nervousness [Recovered/Resolved]
  - Therapeutic response unexpected [Unknown]
  - Pain in extremity [Recovered/Resolved]
  - Reduced facial expression [Recovering/Resolving]
  - Anxiety [Recovered/Resolved]
  - Sinus disorder [Recovered/Resolved]
  - Insomnia [Recovering/Resolving]
  - Nausea [Recovered/Resolved]
  - Intentional product misuse [Not Recovered/Not Resolved]
  - Dysentery [Recovered/Resolved]
  - Depressed mood [Recovering/Resolving]
  - Palpitations [Not Recovered/Not Resolved]
  - Gene mutation [Not Recovered/Not Resolved]
  - Tachyphrenia [Recovering/Resolving]
  - Off label use [Not Recovered/Not Resolved]

NARRATIVE: CASE EVENT DATE: 201604
